FAERS Safety Report 10790165 (Version 1)
Quarter: 2015Q1

REPORT INFORMATION
  Report Type: Spontaneous
  Country: FR (occurrence: FR)
  Receive Date: 20150212
  Receipt Date: 20150212
  Transmission Date: 20150721
  Serious: Yes (Life-Threatening)
  Sender: FDA-Public Use
  Company Number: FR-ASTRAZENECA-2015SE13074

PATIENT
  Age: 5584 Day
  Sex: Female

DRUGS (5)
  1. XANAX [Suspect]
     Active Substance: ALPRAZOLAM
     Route: 048
  2. XANAX [Suspect]
     Active Substance: ALPRAZOLAM
     Route: 048
     Dates: start: 20141104, end: 20141104
  3. PARACETAMOL [Suspect]
     Active Substance: ACETAMINOPHEN
     Route: 048
     Dates: start: 20141104, end: 20141104
  4. XEROQUEL [Suspect]
     Active Substance: QUETIAPINE FUMARATE
     Route: 048
     Dates: start: 20141104, end: 20141104
  5. XEROQUEL [Suspect]
     Active Substance: QUETIAPINE FUMARATE
     Route: 048

REACTIONS (5)
  - Dizziness [Unknown]
  - Clonus [Recovered/Resolved]
  - Toxicity to various agents [Unknown]
  - Coma [Recovered/Resolved]
  - Suicide attempt [Recovered/Resolved]

NARRATIVE: CASE EVENT DATE: 20141104
